FAERS Safety Report 10394595 (Version 1)
Quarter: 2014Q3

REPORT INFORMATION
  Report Type: Spontaneous
  Country: GB (occurrence: GB)
  Receive Date: 20140820
  Receipt Date: 20140820
  Transmission Date: 20150326
  Serious: Yes (Hospitalization)
  Sender: FDA-Public Use
  Company Number: GB-ACCORD-025362

PATIENT
  Age: 78 Year

DRUGS (14)
  1. FOSTAIR [Concomitant]
     Dosage: 100 MICROGRAMS AND 6 MICROGRAMS
     Route: 055
  2. MOMETASONE [Concomitant]
     Active Substance: MOMETASONE
     Route: 045
  3. TOLTERODINE/TOLTERODINE L-TARTRATE [Concomitant]
  4. DOXAZOSIN [Concomitant]
     Active Substance: DOXAZOSIN\DOXAZOSIN MESYLATE
  5. FUROSEMIDE. [Concomitant]
     Active Substance: FUROSEMIDE
  6. LOSARTAN [Concomitant]
     Active Substance: LOSARTAN
  7. LORATADINE. [Concomitant]
     Active Substance: LORATADINE
  8. AMITRIPTYLINE [Suspect]
     Active Substance: AMITRIPTYLINE
     Indication: PRODUCT USED FOR UNKNOWN INDICATION
     Dates: start: 20140725, end: 20140725
  9. IBUPROFEN. [Concomitant]
     Active Substance: IBUPROFEN
  10. PARACETAMOL [Concomitant]
     Active Substance: ACETAMINOPHEN
  11. TRAMADOL [Concomitant]
     Active Substance: TRAMADOL
  12. DOCUSATE/DOCUSATE CALCIUM/DOCUSATE POTASSIUM/DOCUSATE SODIUM [Concomitant]
  13. LIVIAL [Concomitant]
     Active Substance: TIBOLONE
  14. SALBUTAMOL [Concomitant]
     Active Substance: ALBUTEROL
     Route: 055

REACTIONS (2)
  - Tachycardia [Unknown]
  - Dyspnoea [Unknown]

NARRATIVE: CASE EVENT DATE: 20140726
